FAERS Safety Report 18201459 (Version 1)
Quarter: 2020Q3

REPORT INFORMATION
  Report Type: Spontaneous
  Country: US (occurrence: US)
  Receive Date: 20200826
  Receipt Date: 20200826
  Transmission Date: 20201103
  Serious: Yes (Death)
  Sender: FDA-Public Use
  Company Number: None

PATIENT
  Sex: Male
  Weight: 102 kg

DRUGS (5)
  1. DEXAMETHASONE. [Concomitant]
     Active Substance: DEXAMETHASONE
  2. REMDESIVIR. [Suspect]
     Active Substance: REMDESIVIR
  3. LOVENOX [Concomitant]
     Active Substance: ENOXAPARIN SODIUM
  4. TOCILIZUMAB. [Concomitant]
     Active Substance: TOCILIZUMAB
  5. IV VITAMIN C [Concomitant]

REACTIONS (7)
  - Mouth haemorrhage [None]
  - Cardiac arrest [None]
  - Septic shock [None]
  - Tracheobronchitis bacterial [None]
  - Epistaxis [None]
  - Condition aggravated [None]
  - PaO2/FiO2 ratio decreased [None]
